FAERS Safety Report 15403935 (Version 3)
Quarter: 2018Q4

REPORT INFORMATION
  Report Type: Report from Study
  Country: CA (occurrence: CA)
  Receive Date: 20180919
  Receipt Date: 20181004
  Transmission Date: 20190204
  Serious: Yes (Other)
  Sender: FDA-Public Use
  Company Number: CA-JNJFOC-20180714095

PATIENT
  Age: 26 Year
  Sex: Female
  Weight: 75.6 kg

DRUGS (1)
  1. STELARA [Suspect]
     Active Substance: USTEKINUMAB
     Indication: CROHN^S DISEASE
     Dosage: STRENGTH = 90 MG
     Route: 058
     Dates: start: 20171220

REACTIONS (11)
  - Limb mass [Unknown]
  - Sinusitis [Unknown]
  - Hypotension [Not Recovered/Not Resolved]
  - Diarrhoea [Unknown]
  - Tooth abscess [Not Recovered/Not Resolved]
  - Viral upper respiratory tract infection [Recovered/Resolved]
  - Bronchitis [Unknown]
  - Nasopharyngitis [Unknown]
  - Abdominal distension [Not Recovered/Not Resolved]
  - General physical health deterioration [Unknown]
  - Fatigue [Not Recovered/Not Resolved]

NARRATIVE: CASE EVENT DATE: 201808
